FAERS Safety Report 13374686 (Version 1)
Quarter: 2017Q1

REPORT INFORMATION
  Report Type: Spontaneous
  Country: US (occurrence: US)
  Receive Date: 20170327
  Receipt Date: 20170327
  Transmission Date: 20170429
  Serious: No
  Sender: FDA-Public Use
  Company Number: None

PATIENT
  Age: 60 Year
  Sex: Female
  Weight: 56.75 kg

DRUGS (3)
  1. VALACYCLOVIR 500MG TABLETS [Suspect]
     Active Substance: VALACYCLOVIR HYDROCHLORIDE
     Indication: ORAL HERPES
     Dosage: 500MG 2 PILLS-3 DAYS 12 HRS 2X A DAY 3 DAYS MOUTH
     Route: 048
     Dates: start: 20170215, end: 20170217
  2. APPLE CIDER VINEGAR [Concomitant]
     Active Substance: APPLE CIDER VINEGAR
  3. GARLIC. [Concomitant]
     Active Substance: GARLIC

REACTIONS (4)
  - Myalgia [None]
  - Suicidal ideation [None]
  - Dyspnoea [None]
  - Apparent death [None]

NARRATIVE: CASE EVENT DATE: 20170216
